FAERS Safety Report 8988218 (Version 2)
Quarter: 2013Q4

REPORT INFORMATION
  Report Type: Report from Study
  Country: JP (occurrence: JP)
  Receive Date: 20121227
  Receipt Date: 20131007
  Transmission Date: 20140711
  Serious: Yes (Hospitalization, Other)
  Sender: FDA-Public Use
  Company Number: JP-ASTELLAS-2012US012710

PATIENT
  Age: 44 Year
  Sex: Male

DRUGS (19)
  1. ERLOTINIB TABLET [Suspect]
     Indication: ADENOCARCINOMA PANCREAS
     Dosage: 100 MG, UID/QD
     Route: 048
     Dates: start: 20120607, end: 20120620
  2. ERLOTINIB TABLET [Suspect]
     Dosage: 50 MG, UID/QD
     Route: 048
     Dates: start: 20120705, end: 20120718
  3. ERLOTINIB TABLET [Suspect]
     Dosage: 100 MG, UID/QD
     Route: 048
     Dates: start: 20120719, end: 20120827
  4. GEMCITABINE HYDROCHLORIDE [Suspect]
     Indication: ADENOCARCINOMA PANCREAS
     Dosage: 1000 MG/M2, UID/QD
     Route: 041
     Dates: start: 20120607, end: 20120607
  5. GEMCITABINE HYDROCHLORIDE [Suspect]
     Dosage: 1000 MG/M2, UID/QD
     Route: 041
     Dates: start: 20120614, end: 20120614
  6. GEMCITABINE HYDROCHLORIDE [Suspect]
     Dosage: 800 MG/M2, UID/QD
     Route: 041
     Dates: start: 20120705, end: 20120705
  7. GEMCITABINE HYDROCHLORIDE [Suspect]
     Dosage: 800 MG/M2, UID/QD
     Route: 041
     Dates: start: 20120712, end: 20120712
  8. GEMCITABINE HYDROCHLORIDE [Suspect]
     Dosage: 800 MG/M2, UID/QD
     Route: 041
     Dates: start: 20120802, end: 20120802
  9. GEMCITABINE HYDROCHLORIDE [Suspect]
     Dosage: 800 MG/M2, UID/QD
     Route: 041
     Dates: start: 20120809, end: 20120809
  10. GEMCITABINE HYDROCHLORIDE [Suspect]
     Dosage: 800 MG/M2, UID/QD
     Route: 041
     Dates: start: 20120816, end: 20120816
  11. LOXONIN [Concomitant]
     Indication: ADENOCARCINOMA PANCREAS
     Dosage: 180 MG, UID/QD
     Route: 048
     Dates: start: 20120529
  12. MUCOSTA [Concomitant]
     Indication: ADENOCARCINOMA PANCREAS
     Dosage: 300 MG, UID/QD
     Route: 048
     Dates: start: 20120529
  13. PARIET [Concomitant]
     Indication: ADENOCARCINOMA PANCREAS
     Dosage: 10 MG, UID/QD
     Route: 048
     Dates: start: 20120529
  14. OXYCONTIN [Concomitant]
     Indication: ADENOCARCINOMA PANCREAS
     Dosage: 10 MG, UID/QD
     Route: 048
     Dates: start: 20120601
  15. OXINORM                            /00045603/ [Concomitant]
     Indication: ADENOCARCINOMA PANCREAS
     Dosage: 2.5 MG, UID/QD
     Route: 048
     Dates: start: 20120601
  16. NOVAMIN                            /00391002/ [Concomitant]
     Indication: ADENOCARCINOMA PANCREAS
     Dosage: 15 MG, UID/QD
     Route: 048
     Dates: start: 20120601
  17. MAGNESIUM OXIDE [Concomitant]
     Indication: ADENOCARCINOMA PANCREAS
     Dosage: 3 G, UID/QD
     Route: 048
     Dates: start: 20120601
  18. PANTOSIN [Concomitant]
     Indication: PRODUCT USED FOR UNKNOWN INDICATION
     Dosage: 3 G, UID/QD
     Route: 048
     Dates: start: 20120601
  19. SOLUTIONS FOR PARENTERAL NUTRITION [Concomitant]
     Indication: PRODUCT USED FOR UNKNOWN INDICATION
     Dosage: 80 G, UID/QD
     Route: 048
     Dates: start: 20120705

REACTIONS (3)
  - Skin disorder [Recovering/Resolving]
  - Interstitial lung disease [Recovering/Resolving]
  - Malignant neoplasm progression [Unknown]
